FAERS Safety Report 10616194 (Version 1)
Quarter: 2014Q4

REPORT INFORMATION
  Report Type: Spontaneous
  Country: PH (occurrence: PH)
  Receive Date: 20141201
  Receipt Date: 20141201
  Transmission Date: 20150529
  Serious: Yes (Death, Other)
  Sender: FDA-Public Use
  Company Number: PHHY2014PH153378

PATIENT
  Age: 31 Year
  Sex: Male

DRUGS (1)
  1. METHYLPREDNISOLONE. [Suspect]
     Active Substance: METHYLPREDNISOLONE
     Indication: NEPHROTIC SYNDROME
     Dosage: 500 MG, UNK
     Route: 042

REACTIONS (17)
  - Crepitations [Unknown]
  - Petechiae [Unknown]
  - Anaemia [Unknown]
  - Hypoalbuminaemia [Unknown]
  - Strongyloidiasis [Unknown]
  - Acute respiratory distress syndrome [Unknown]
  - Dyspnoea [Unknown]
  - Purpura [Unknown]
  - Eosinopenia [Unknown]
  - Death [Fatal]
  - Cachexia [Unknown]
  - Tachycardia [Unknown]
  - Pneumonia [Unknown]
  - Leukocytosis [Unknown]
  - Infection [Unknown]
  - Wheezing [Unknown]
  - Oedema [Unknown]
